FAERS Safety Report 15306403 (Version 2)
Quarter: 2018Q3

REPORT INFORMATION
  Report Type: Spontaneous
  Country: RO (occurrence: RO)
  Receive Date: 20180822
  Receipt Date: 20180827
  Transmission Date: 20181010
  Serious: Yes (Life-Threatening, Hospitalization)
  Sender: FDA-Public Use
  Company Number: RO-ROCHE-2173529

PATIENT
  Age: 60 Year
  Sex: Male

DRUGS (6)
  1. RIBAVIRIN. [Suspect]
     Active Substance: RIBAVIRIN
     Indication: PRODUCT USED FOR UNKNOWN INDICATION
     Route: 048
  2. SILIMARINA [Concomitant]
  3. HARVONI [Suspect]
     Active Substance: LEDIPASVIR\SOFOSBUVIR
     Indication: HEPATITIS C
     Route: 048
  4. ESSENTIALE (UNK INGREDIENTS) [Concomitant]
  5. URSOFALK [Concomitant]
     Active Substance: URSODIOL
  6. INSULIN [Concomitant]
     Active Substance: INSULIN NOS

REACTIONS (6)
  - Malaise [Not Recovered/Not Resolved]
  - Weight decreased [Unknown]
  - Tracheostomy [Not Recovered/Not Resolved]
  - Endotracheal intubation [Unknown]
  - Cardio-respiratory arrest [Not Recovered/Not Resolved]
  - Dysphagia [Unknown]

NARRATIVE: CASE EVENT DATE: 201807
